FAERS Safety Report 13484391 (Version 1)
Quarter: 2017Q2

REPORT INFORMATION
  Report Type: Spontaneous
  Country: IT (occurrence: IT)
  Receive Date: 20170426
  Receipt Date: 20170426
  Transmission Date: 20170830
  Serious: Yes (Other)
  Sender: FDA-Public Use
  Company Number: PHHY2017IT059980

PATIENT
  Age: 41 Year
  Sex: Female

DRUGS (2)
  1. TEGRETOL [Suspect]
     Active Substance: CARBAMAZEPINE
     Indication: MENTAL DISORDER
     Dosage: 1200 MG, ONCE/SINGLE (30 TABLETS)
     Route: 048
     Dates: start: 20170329, end: 20170329
  2. HALDOL [Suspect]
     Active Substance: HALOPERIDOL
     Indication: MENTAL DISORDER
     Dosage: 150 MG, ONCE/SINGLE (30 TABLETS)
     Route: 048
     Dates: start: 20170329, end: 20170329

REACTIONS (3)
  - Suicidal ideation [Unknown]
  - Intentional self-injury [Unknown]
  - Intentional overdose [Unknown]

NARRATIVE: CASE EVENT DATE: 20170329
